FAERS Safety Report 8162736-9 (Version None)
Quarter: 2012Q1

REPORT INFORMATION
  Report Type: 
  Country: None (occurrence: None)
  Receive Date: 20120224
  Receipt Date: 20120221
  Transmission Date: 20120608
  Serious: Yes (Death)
  Sender: FDA-Public Use
  Company Number: TN-SANOFI-AVENTIS-2012SA011822

PATIENT
  Age: 54 Year
  Sex: Male

DRUGS (7)
  1. CORVASAL [Concomitant]
     Route: 048
     Dates: end: 20120120
  2. PLAVIX [Suspect]
     Route: 048
     Dates: start: 20110424, end: 20120120
  3. ASPEGIC 1000 [Concomitant]
     Route: 048
     Dates: end: 20120120
  4. PLAVIX [Suspect]
     Route: 048
     Dates: start: 20110424, end: 20120120
  5. CAPTOPRIL [Concomitant]
     Route: 048
     Dates: end: 20120120
  6. ROSUVASTATIN CALCIUM [Concomitant]
     Route: 048
     Dates: end: 20120120
  7. HYPOTEN [Concomitant]
     Route: 048
     Dates: end: 20120120

REACTIONS (1)
  - NEOPLASM MALIGNANT [None]
